FAERS Safety Report 9616467 (Version 1)
Quarter: 2013Q4

REPORT INFORMATION
  Report Type: Spontaneous
  Country: US (occurrence: None)
  Receive Date: 20131010
  Receipt Date: 20131010
  Transmission Date: 20140711
  Serious: Yes (Life-Threatening, Hospitalization)
  Sender: FDA-Public Use
  Company Number: None

PATIENT
  Age: 5 Year
  Sex: Male
  Weight: 17.4 kg

DRUGS (1)
  1. ONCASPAR [Suspect]
     Indication: PRECURSOR B-LYMPHOBLASTIC LYMPHOMA

REACTIONS (3)
  - Infusion related reaction [None]
  - Cough [None]
  - Dyspnoea [None]
